FAERS Safety Report 11678355 (Version 5)
Quarter: 2015Q4

REPORT INFORMATION
  Report Type: Report from Study
  Country: CO (occurrence: CO)
  Receive Date: 20151028
  Receipt Date: 20151214
  Transmission Date: 20160304
  Serious: Yes (Hospitalization, Other)
  Sender: FDA-Public Use
  Company Number: PHHY2015CO138706

PATIENT
  Age: 51 Year
  Sex: Female
  Weight: 59 kg

DRUGS (3)
  1. AFINITOR [Suspect]
     Active Substance: EVEROLIMUS
     Indication: BREAST CANCER
     Dosage: 10 MG, QHS
     Route: 048
     Dates: start: 20150712, end: 20151007
  2. EXEMESTANE. [Concomitant]
     Active Substance: EXEMESTANE
     Indication: PRODUCT USED FOR UNKNOWN INDICATION
     Dosage: 25 MG, QD
     Route: 065
  3. AFINITOR [Suspect]
     Active Substance: EVEROLIMUS
     Indication: RENAL CANCER

REACTIONS (8)
  - Metastases to lung [Unknown]
  - Metastasis [Unknown]
  - Asthenia [Recovering/Resolving]
  - Musculoskeletal chest pain [Recovering/Resolving]
  - Wheezing [Recovering/Resolving]
  - Lung disorder [Unknown]
  - Back pain [Recovering/Resolving]
  - Dyspnoea [Recovering/Resolving]

NARRATIVE: CASE EVENT DATE: 20150921
